FAERS Safety Report 16535986 (Version 2)
Quarter: 2019Q3

REPORT INFORMATION
  Report Type: Spontaneous
  Country: US (occurrence: US)
  Receive Date: 20190705
  Receipt Date: 20190811
  Transmission Date: 20191004
  Serious: No
  Sender: FDA-Public Use
  Company Number: US-AMGEN-USASP2019106003

PATIENT
  Age: 37 Year
  Sex: Male
  Weight: 74.83 kg

DRUGS (13)
  1. SUBOXONE [Concomitant]
     Active Substance: BUPRENORPHINE HYDROCHLORIDE\NALOXONE HYDROCHLORIDE
     Dosage: UNK
  2. KLONOPIN [Concomitant]
     Active Substance: CLONAZEPAM
     Dosage: UNK
  3. AIMOVIG [Suspect]
     Active Substance: ERENUMAB-AOOE
     Indication: MIGRAINE PROPHYLAXIS
     Dosage: 70 MILLIGRAM, QMO
     Route: 058
     Dates: start: 20190522
  4. NEURONTIN [Concomitant]
     Active Substance: GABAPENTIN
     Dosage: UNK
  5. SOMA [Concomitant]
     Active Substance: CARISOPRODOL
     Dosage: UNK
  6. EXCEDRIN [Concomitant]
     Active Substance: ACETAMINOPHEN\ASPIRIN\CAFFEINE
     Dosage: UNK
  7. IBUPROFEN. [Concomitant]
     Active Substance: IBUPROFEN
     Dosage: UNK
  8. MISOPROSTOL. [Concomitant]
     Active Substance: MISOPROSTOL
     Dosage: UNK
  9. BOTOX [Concomitant]
     Active Substance: ONABOTULINUMTOXINA
     Indication: MIGRAINE PROPHYLAXIS
     Dosage: UNK
  10. ATENOLOL. [Concomitant]
     Active Substance: ATENOLOL
     Dosage: UNK
  11. TIGAN [Concomitant]
     Active Substance: TRIMETHOBENZAMIDE HYDROCHLORIDE
     Indication: NAUSEA
     Dosage: UNK
  12. TYLENOL [Concomitant]
     Active Substance: ACETAMINOPHEN
     Dosage: UNK
  13. CELEXA [CELECOXIB] [Concomitant]
     Active Substance: CELECOXIB
     Dosage: UNK

REACTIONS (1)
  - Accidental exposure to product [Unknown]

NARRATIVE: CASE EVENT DATE: 20190702
